FAERS Safety Report 10854003 (Version 1)
Quarter: 2015Q1

REPORT INFORMATION
  Report Type: Spontaneous
  Country: CO (occurrence: CO)
  Receive Date: 20150223
  Receipt Date: 20150223
  Transmission Date: 20150721
  Serious: Yes (Other)
  Sender: FDA-Public Use
  Company Number: CO-BAYER-2015-023020

PATIENT
  Age: 29 Year
  Sex: Female

DRUGS (6)
  1. CALCITROL [Concomitant]
     Active Substance: CALCITRIOL
     Indication: RHEUMATOID ARTHRITIS
  2. FOLIC ACID. [Concomitant]
     Active Substance: FOLIC ACID
     Indication: RHEUMATOID ARTHRITIS
  3. MIRENA [Suspect]
     Active Substance: LEVONORGESTREL
     Indication: MENORRHAGIA
     Dosage: 20 MCG/24HR, CONT
     Route: 015
     Dates: start: 2008, end: 201207
  4. MIRENA [Suspect]
     Active Substance: LEVONORGESTREL
     Indication: PELVIC PAIN
     Dosage: 20 MCG/24HR, CONT
     Route: 015
     Dates: start: 201208
  5. METHOTREXATE [Concomitant]
     Active Substance: METHOTREXATE
     Indication: RHEUMATOID ARTHRITIS
     Dosage: 2.5 MG, TIW
     Route: 048
  6. ETANERCEPT [Concomitant]
     Active Substance: ETANERCEPT
     Indication: RHEUMATOID ARTHRITIS
     Dosage: 50 MG, OW
     Dates: start: 2008

REACTIONS (13)
  - Headache [Recovered/Resolved]
  - Abdominal pain lower [Not Recovered/Not Resolved]
  - Coital bleeding [Not Recovered/Not Resolved]
  - Headache [Not Recovered/Not Resolved]
  - Abdominal pain [Recovered/Resolved]
  - Breast tenderness [Not Recovered/Not Resolved]
  - Dyspareunia [Not Recovered/Not Resolved]
  - Benign breast neoplasm [Not Recovered/Not Resolved]
  - Vaginal discharge [Not Recovered/Not Resolved]
  - Acne [Not Recovered/Not Resolved]
  - Bloody discharge [Recovered/Resolved]
  - Swelling [Not Recovered/Not Resolved]
  - Rash macular [Not Recovered/Not Resolved]

NARRATIVE: CASE EVENT DATE: 201207
